FAERS Safety Report 4286206-3 (Version None)
Quarter: 2004Q1

REPORT INFORMATION
  Report Type: 
  Country: None (occurrence: None)
  Receive Date: 20040114
  Receipt Date: 20030417
  Transmission Date: 20041129
  Serious: No
  Sender: FDA-Public Use
  Company Number: 336339

PATIENT
  Age: 33 Year
  Sex: Female
  Weight: 64.9 kg

DRUGS (1)
  1. ROCEPHIN [Suspect]
     Indication: LYME DISEASE
     Dosage: 2 GRAM DAILY INTRAVENOUS
     Route: 042
     Dates: start: 20030324, end: 20030411

REACTIONS (20)
  - ANAPHYLACTIC REACTION [None]
  - ARTHRALGIA [None]
  - ASTHENIA [None]
  - BACK PAIN [None]
  - CHEST DISCOMFORT [None]
  - CHEST PAIN [None]
  - CHILLS [None]
  - COUGH [None]
  - FLUSHING [None]
  - LYMPHADENOPATHY [None]
  - NEUROPATHY [None]
  - PALPITATIONS [None]
  - PARAESTHESIA [None]
  - PROTEIN TOTAL INCREASED [None]
  - PROTEIN URINE [None]
  - PYREXIA [None]
  - RASH [None]
  - RED BLOOD CELL SEDIMENTATION RATE INCREASED [None]
  - SERUM SICKNESS [None]
  - WHEEZING [None]
